FAERS Safety Report 18783942 (Version 1)
Quarter: 2021Q1

REPORT INFORMATION
  Report Type: Spontaneous
  Country: IT (occurrence: IT)
  Receive Date: 20210125
  Receipt Date: 20210125
  Transmission Date: 20210419
  Serious: Yes (Other)
  Sender: FDA-Public Use
  Company Number: IT-AMGEN-ITANI2021008922

PATIENT
  Age: 59 Year
  Sex: Female

DRUGS (1)
  1. KANJINTI [Suspect]
     Active Substance: TRASTUZUMAB-ANNS
     Indication: BREAST CANCER
     Dosage: UNK
     Route: 065
     Dates: start: 20200201

REACTIONS (4)
  - Arthralgia [Recovering/Resolving]
  - Xerophthalmia [Recovering/Resolving]
  - Hot flush [Recovering/Resolving]
  - Parosmia [Recovering/Resolving]

NARRATIVE: CASE EVENT DATE: 20200201
